FAERS Safety Report 23863613 (Version 2)
Quarter: 2024Q2

REPORT INFORMATION
  Report Type: Report from Study
  Country: RU (occurrence: RU)
  Receive Date: 20240516
  Receipt Date: 20240521
  Transmission Date: 20240716
  Serious: Yes (Other)
  Sender: FDA-Public Use
  Company Number: RU-002147023-NVSC2024RU103218

PATIENT
  Age: 57 Year
  Sex: Male

DRUGS (4)
  1. SECUKINUMAB [Suspect]
     Active Substance: SECUKINUMAB
     Indication: Psoriatic arthropathy
     Dosage: 300 MG, QW (INDUCED ON 0, 1, 2, 3 WEEKS BY 300 MG DOSE, LATER (STARTING FROM WEEK 4) 300 MG ONCE A M
     Route: 058
     Dates: start: 2013
  2. SECUKINUMAB [Suspect]
     Active Substance: SECUKINUMAB
     Dosage: 300 MG, QMO (INDUCED ON 0, 1, 2, 3 WEEKS BY 300 MG DOSE, LATER (STARTING FROM WEEK 4) 300 MG ONCE A
     Route: 058
     Dates: start: 2020
  3. SECUKINUMAB [Suspect]
     Active Substance: SECUKINUMAB
     Dosage: 300 MG
     Route: 058
     Dates: start: 202112
  4. METHOTREXATE [Concomitant]
     Active Substance: METHOTREXATE
     Indication: Product used for unknown indication
     Route: 065

REACTIONS (5)
  - Psoriatic arthropathy [Recovering/Resolving]
  - Dermatitis psoriasiform [Recovering/Resolving]
  - Inappropriate schedule of product administration [Recovering/Resolving]
  - Product use issue [Unknown]
  - Infection [Unknown]

NARRATIVE: CASE EVENT DATE: 20200101
